FAERS Safety Report 4327650-5 (Version None)
Quarter: 2004Q1

REPORT INFORMATION
  Report Type: 
  Country: None (occurrence: None)
  Receive Date: 20040325
  Receipt Date: 20040310
  Transmission Date: 20041129
  Serious: Yes (Disabling)
  Sender: FDA-Public Use
  Company Number: S04-UKI-01087-01

PATIENT
  Age: 86 Year
  Sex: Female

DRUGS (4)
  1. CIPRALEX (ESCITALOPRAM) [Suspect]
     Indication: DEPRESSION
     Dosage: 10 MG QD PO
     Route: 048
     Dates: start: 20030901, end: 20040125
  2. ASPIRIN [Concomitant]
  3. RANITIDINE [Concomitant]
  4. CITALOPRAM [Concomitant]

REACTIONS (5)
  - CEREBRAL ISCHAEMIA [None]
  - DYSKINESIA [None]
  - HALLUCINATION, VISUAL [None]
  - PARKINSONISM [None]
  - SOMNOLENCE [None]
